FAERS Safety Report 4744531-3 (Version None)
Quarter: 2005Q3

REPORT INFORMATION
  Report Type: 
  Country: None (occurrence: None)
  Receive Date: 20050808
  Receipt Date: 20040809
  Transmission Date: 20060218
  Serious: Yes (Other)
  Sender: FDA-Public Use
  Company Number: US-JNJFOC-20040803669

PATIENT
  Age: 4 Year
  Sex: Male
  Weight: 15.4223 kg

DRUGS (2)
  1. TYLENOL (CAPLET) [Suspect]
     Indication: DRUG USE FOR UNKNOWN INDICATION
     Dates: start: 20040801, end: 20040801
  2. CHILDREN'S TYLENOL SINUS FRUIT [Suspect]
     Indication: DRUG USE FOR UNKNOWN INDICATION
     Dates: start: 20040801, end: 20040801

REACTIONS (2)
  - ACCIDENTAL EXPOSURE [None]
  - POOR QUALITY DRUG ADMINISTERED [None]
